FAERS Safety Report 23366108 (Version 1)
Quarter: 2024Q1

REPORT INFORMATION
  Report Type: Spontaneous
  Country: CA (occurrence: CA)
  Receive Date: 20240104
  Receipt Date: 20240104
  Transmission Date: 20240410
  Serious: Yes (Life-Threatening, Hospitalization)
  Sender: FDA-Public Use
  Company Number: CA-PERRIGO-23CA014896

PATIENT
  Age: 15 Year
  Sex: Female
  Weight: 78 kg

DRUGS (3)
  1. LEVONORGESTREL [Suspect]
     Active Substance: LEVONORGESTREL
     Indication: Contraception
     Dosage: 1 EVERY 1 DAYS
     Route: 048
  2. INTUNIV [Concomitant]
     Active Substance: GUANFACINE HYDROCHLORIDE
     Indication: Product used for unknown indication
     Route: 065
  3. SERTRALINE [Concomitant]
     Active Substance: SERTRALINE HYDROCHLORIDE
     Indication: Product used for unknown indication
     Route: 065

REACTIONS (3)
  - Thrombosis [Recovered/Resolved]
  - Peripheral vein thrombus extension [Recovered/Resolved]
  - Pain in extremity [Recovered/Resolved]
